FAERS Safety Report 8916119 (Version 1)
Quarter: 2012Q4

REPORT INFORMATION
  Report Type: 
  Country: US (occurrence: US)
  Receive Date: 20121120
  Receipt Date: 20121120
  Transmission Date: 20130627
  Serious: Yes (Other)
  Sender: FDA-Public Use
  Company Number: PHEH2012US022681

PATIENT
  Sex: Female

DRUGS (3)
  1. RECLAST [Suspect]
     Dosage: UNK UKN, UNK
     Route: 042
  2. PLAVIX [Concomitant]
  3. FLEXERIL [Concomitant]

REACTIONS (4)
  - Spinal disorder [Unknown]
  - Hypokinesia [Unknown]
  - Arthralgia [Unknown]
  - Myalgia [Unknown]
